FAERS Safety Report 8459182-7 (Version None)
Quarter: 2012Q2

REPORT INFORMATION
  Report Type: 
  Country: None (occurrence: None)
  Receive Date: 20120622
  Receipt Date: 20120613
  Transmission Date: 20120825
  Serious: Yes (Other)
  Sender: FDA-Public Use
  Company Number: BR-ASTRAZENECA-2012SE40093

PATIENT
  Age: 24057 Day
  Sex: Male
  Weight: 105 kg

DRUGS (5)
  1. CRESTOR [Suspect]
     Indication: BLOOD CHOLESTEROL INCREASED
     Route: 048
  2. ATACAND [Suspect]
     Indication: HYPERTENSION
     Route: 048
     Dates: start: 20110101
  3. CECOTEX [Concomitant]
     Indication: PROSTATIC DISORDER
     Route: 048
  4. SOMALGIN CARDIO [Suspect]
     Indication: HYPERTENSION
     Route: 048
  5. METOPROLOL SUCCINATE [Suspect]
     Indication: HYPERTENSION
     Route: 048
     Dates: start: 20110101

REACTIONS (8)
  - SYNCOPE [None]
  - SPEECH DISORDER [None]
  - DIZZINESS [None]
  - FALL [None]
  - HEAD INJURY [None]
  - CEREBRAL HAEMATOMA [None]
  - PALPITATIONS [None]
  - MALAISE [None]
